FAERS Safety Report 8460117-1 (Version None)
Quarter: 2012Q2

REPORT INFORMATION
  Report Type: 
  Country: None (occurrence: None)
  Receive Date: 20120622
  Receipt Date: 20120619
  Transmission Date: 20120825
  Serious: Yes (Death, Hospitalization)
  Sender: FDA-Public Use
  Company Number: US-ELI_LILLY_AND_COMPANY-US201206006059

PATIENT
  Sex: Male

DRUGS (1)
  1. ALIMTA [Suspect]
     Indication: LUNG CANCER METASTATIC
     Dosage: 1000 MG, EVERY 2 WEEKS
     Route: 042
     Dates: start: 20110701, end: 20111001

REACTIONS (2)
  - DEATH [None]
  - PLEURAL EFFUSION [None]
